FAERS Safety Report 6469402-6 (Version None)
Quarter: 2009Q4

REPORT INFORMATION
  Report Type: 
  Country: None (occurrence: None)
  Receive Date: 20091203
  Receipt Date: 20091123
  Transmission Date: 20100525
  Serious: Yes (Other)
  Sender: FDA-Public Use
  Company Number: US-ELI_LILLY_AND_COMPANY-US200911006307

PATIENT
  Sex: Female

DRUGS (2)
  1. FORTEO [Suspect]
     Dosage: UNK, UNK
     Dates: start: 20080812
  2. GABAPENTIN [Concomitant]

REACTIONS (6)
  - BLINDNESS [None]
  - CATARACT [None]
  - DISCOMFORT [None]
  - HEADACHE [None]
  - HYPOACUSIS [None]
  - RESORPTION BONE INCREASED [None]
